FAERS Safety Report 9167501 (Version 1)
Quarter: 2013Q1

REPORT INFORMATION
  Report Type: Spontaneous
  Country: CA (occurrence: None)
  Receive Date: 20130307
  Receipt Date: 20130307
  Transmission Date: 20140127
  Serious: Yes (Hospitalization, Other)
  Sender: FDA-Public Use
  Company Number: 2013AP003292

PATIENT
  Age: 59 Year
  Sex: Male

DRUGS (20)
  1. PANTOPRAZOLE (PANTOPRAZOLE) [Suspect]
     Indication: PRODUCT USED FOR UNKNOWN INDICATION
     Dosage: 40 MG; UNKNOWN; QD
     Dates: start: 20110503, end: 20130122
  2. AMITRIPTYLINE HYDROCHLORIDE [Suspect]
     Indication: PRODUCT USED FOR UNKNOWN INDICATION
     Dosage: 10 MG; UNKNOWN; QD
     Dates: start: 20121203, end: 20130121
  3. BLINDED [Suspect]
     Indication: CARDIOVASCULAR EVENT PROPHYLAXIS
     Dosage: UNKNOWN; TAB; PO; QD
     Route: 048
     Dates: start: 20110503, end: 20121219
  4. ASA (ACETYLSALICYLIC ACID) [Concomitant]
  5. RAMIPRIL (RAMIPRIL) [Concomitant]
  6. CHAMPIX (VARENICLINE TARTRATE) [Concomitant]
  7. NITROGLYCERIN (GLYCERYL TRINITRATE) [Concomitant]
  8. BISOPROLOL (BISOPROLOL) [Concomitant]
  9. COUMADIN /00014802/ (WARFARIN SODIUM) [Concomitant]
  10. CLOPIDOGREL (CLOPIDOGREL) [Concomitant]
  11. LIPITOR (ATORVASTATIN CALCIUM) [Concomitant]
  12. INSULIN (INSULIN) [Concomitant]
  13. ATORVASTATIN (ATORVASTATIN) [Concomitant]
  14. METFORMIN (METFORMIN) [Concomitant]
  15. VESICARE (SOLIFENACIN SUCCINATE) [Concomitant]
  16. GLYBURIDE (GLIBENCLAMIDE) [Concomitant]
  17. CENTRUM /00554501/ (CENTRUM /00554501/) [Concomitant]
  18. FLOMAX /01280302/ (TAMSULOSIN HYDROCHLORIDE) [Concomitant]
  19. NORVASC (AMLODIPINE BESILATE) [Concomitant]
  20. UREMOL (UREA) [Concomitant]

REACTIONS (23)
  - Hypocalcaemia [None]
  - Hypomagnesaemia [None]
  - Vertigo [None]
  - Fall [None]
  - Rhabdomyolysis [None]
  - Urinary retention [None]
  - Migraine [None]
  - Nausea [None]
  - Hypertension [None]
  - Leukoencephalopathy [None]
  - Confusional state [None]
  - Sinusitis [None]
  - Malnutrition [None]
  - Blood potassium decreased [None]
  - Protein total decreased [None]
  - Neutrophil count increased [None]
  - Platelet count increased [None]
  - Basophil count increased [None]
  - Blood fibrinogen increased [None]
  - Brain natriuretic peptide increased [None]
  - C-reactive protein increased [None]
  - Cystatin C increased [None]
  - Blood glucose increased [None]
